FAERS Safety Report 8621809-4 (Version None)
Quarter: 2012Q3

REPORT INFORMATION
  Report Type: 
  Country: None (occurrence: None)
  Receive Date: 20120822
  Receipt Date: 20120822
  Transmission Date: 20120928
  Serious: No
  Sender: FDA-Public Use
  Company Number: None

PATIENT
  Age: 60 Year
  Sex: Female

DRUGS (1)
  1. LOSARTAN POTASSIUM [Suspect]
     Dosage: 100 MG, QD, ORALLY
     Route: 048
     Dates: start: 20100501

REACTIONS (2)
  - PRODUCT SUBSTITUTION ISSUE [None]
  - DIZZINESS [None]
